FAERS Safety Report 5511029-4 (Version None)
Quarter: 2007Q4

REPORT INFORMATION
  Report Type: 
  Country: None (occurrence: None)
  Receive Date: 20071109
  Receipt Date: 20071029
  Transmission Date: 20080405
  Serious: Yes (Other)
  Sender: FDA-Public Use
  Company Number: US-JNJFOC-20071007861

PATIENT
  Sex: Female
  Weight: 81.65 kg

DRUGS (3)
  1. FENTANYL TRANSDERMAL SYSTEM [Suspect]
     Route: 062
  2. FENTANYL TRANSDERMAL SYSTEM [Suspect]
     Indication: ABDOMINAL PAIN UPPER
     Route: 062
  3. PERCOCET [Concomitant]
     Indication: ABDOMINAL PAIN UPPER
     Route: 048

REACTIONS (4)
  - ABDOMINAL ADHESIONS [None]
  - CONDITION AGGRAVATED [None]
  - HIATUS HERNIA [None]
  - INCORRECT DRUG ADMINISTRATION DURATION [None]
